FAERS Safety Report 15699657 (Version 1)
Quarter: 2018Q4

REPORT INFORMATION
  Report Type: Spontaneous
  Country: US (occurrence: US)
  Receive Date: 20181207
  Receipt Date: 20181207
  Transmission Date: 20190205
  Serious: Yes (Life-Threatening)
  Sender: FDA-Public Use
  Company Number: None

PATIENT
  Age: 30 Year
  Sex: Male
  Weight: 63 kg

DRUGS (6)
  1. ALPRAZOLAM. [Suspect]
     Active Substance: ALPRAZOLAM
     Indication: GENERALISED ANXIETY DISORDER
     Dosage: ?          QUANTITY:70 TABLET(S);?
     Route: 048
     Dates: start: 20181206, end: 20181207
  2. ALPRAZOLAM. [Suspect]
     Active Substance: ALPRAZOLAM
     Indication: POST-TRAUMATIC STRESS DISORDER
     Dosage: ?          QUANTITY:70 TABLET(S);?
     Route: 048
     Dates: start: 20181206, end: 20181207
  3. ALPRAZOLAM. [Suspect]
     Active Substance: ALPRAZOLAM
     Indication: SOCIAL ANXIETY DISORDER
     Dosage: ?          QUANTITY:70 TABLET(S);?
     Route: 048
     Dates: start: 20181206, end: 20181207
  4. ALPRAZOLAM. [Suspect]
     Active Substance: ALPRAZOLAM
     Indication: OBSESSIVE-COMPULSIVE DISORDER
     Dosage: ?          QUANTITY:70 TABLET(S);?
     Route: 048
     Dates: start: 20181206, end: 20181207
  5. ALPRAZOLAM. [Suspect]
     Active Substance: ALPRAZOLAM
     Indication: AGORAPHOBIA
     Dosage: ?          QUANTITY:70 TABLET(S);?
     Route: 048
     Dates: start: 20181206, end: 20181207
  6. ALPRAZOLAM. [Suspect]
     Active Substance: ALPRAZOLAM
     Indication: MAJOR DEPRESSION
     Dosage: ?          QUANTITY:70 TABLET(S);?
     Route: 048
     Dates: start: 20181206, end: 20181207

REACTIONS (6)
  - Product substitution issue [None]
  - Product quality issue [None]
  - Seizure [None]
  - Manufacturing materials issue [None]
  - Product physical consistency issue [None]
  - Product complaint [None]

NARRATIVE: CASE EVENT DATE: 20181206
